FAERS Safety Report 15906523 (Version 1)
Quarter: 2019Q1

REPORT INFORMATION
  Report Type: Spontaneous
  Country: US (occurrence: US)
  Receive Date: 20190111
  Receipt Date: 20190111
  Transmission Date: 20190417
  Serious: No
  Sender: FDA-Public Use
  Company Number: None

PATIENT
  Age: 41 Year
  Sex: Male

DRUGS (1)
  1. HARVONI [Suspect]
     Active Substance: LEDIPASVIR\SOFOSBUVIR
     Dates: start: 201812

REACTIONS (10)
  - Influenza like illness [None]
  - Headache [None]
  - Fatigue [None]
  - Alopecia [None]
  - Visual impairment [None]
  - Nausea [None]
  - Sinus congestion [None]
  - Motion sickness [None]
  - Drug interaction [None]
  - Disorientation [None]

NARRATIVE: CASE EVENT DATE: 20190110
